FAERS Safety Report 10270959 (Version 1)
Quarter: 2014Q2

REPORT INFORMATION
  Report Type: Spontaneous
  Country: US (occurrence: None)
  Receive Date: 20140627
  Receipt Date: 20140627
  Transmission Date: 20141212
  Serious: Yes (Hospitalization)
  Sender: FDA-Public Use
  Company Number: 2014STPI000269

PATIENT
  Age: 61 Year
  Sex: Female

DRUGS (1)
  1. MATULANE [Suspect]
     Indication: LYMPHOMA
     Dates: start: 20140422

REACTIONS (3)
  - Nonspecific reaction [None]
  - Constipation [None]
  - Nausea [None]
